FAERS Safety Report 24259504 (Version 1)
Quarter: 2024Q3

REPORT INFORMATION
  Report Type: Spontaneous
  Country: CA (occurrence: CA)
  Receive Date: 20240828
  Receipt Date: 20240828
  Transmission Date: 20241017
  Serious: Yes (Other)
  Sender: BEIGENE
  Company Number: CA-BEIGENE-BGN-2024-013417

PATIENT

DRUGS (3)
  1. BRUKINSA [Suspect]
     Active Substance: ZANUBRUTINIB
     Indication: Waldenstrom^s macroglobulinaemia
     Dosage: 320 MILLIGRAM, QD (2 CAPSULES TWICE A DAY, 12 HOURS APART, OR FOUR ONCE A DAY)
  2. LEVOTHYROXINE [Concomitant]
     Active Substance: LEVOTHYROXINE\LEVOTHYROXINE SODIUM
     Dosage: UNK
  3. LEVODOPA [Concomitant]
     Active Substance: LEVODOPA
     Indication: Parkinson^s disease

REACTIONS (17)
  - Near death experience [Unknown]
  - Pneumonia viral [Unknown]
  - Amnesia [Unknown]
  - Immune system disorder [Unknown]
  - Pulse absent [Unknown]
  - Lower limb fracture [Unknown]
  - Internal fixation of fracture [Unknown]
  - Sleep disorder [Unknown]
  - Fatigue [Unknown]
  - Somnolence [Unknown]
  - Rapid eye movements sleep abnormal [Unknown]
  - Musculoskeletal stiffness [Unknown]
  - Balance disorder [Unknown]
  - Gait disturbance [Unknown]
  - Arthritis [Unknown]
  - Laboratory test abnormal [Unknown]
  - Product dose omission issue [Unknown]
